FAERS Safety Report 5014612-8 (Version None)
Quarter: 2006Q2

REPORT INFORMATION
  Report Type: 
  Country: None (occurrence: None)
  Receive Date: 20060412
  Receipt Date: 20050809
  Transmission Date: 20061013
  Serious: Yes (Other)
  Sender: FDA-Public Use
  Company Number: 2005-BP-13603BP

PATIENT
  Sex: Male

DRUGS (2)
  1. MOBIC [Suspect]
     Dosage: 15 MG (15 MG), NR
  2. ARTHROTEC [Concomitant]

REACTIONS (3)
  - BLOOD CREATININE INCREASED [None]
  - CREATININE RENAL CLEARANCE DECREASED [None]
  - RENAL FAILURE [None]
